FAERS Safety Report 6049989-8 (Version None)
Quarter: 2009Q1

REPORT INFORMATION
  Report Type: 
  Country: None (occurrence: None)
  Receive Date: 20090121
  Receipt Date: 20090109
  Transmission Date: 20090719
  Serious: Yes (Hospitalization)
  Sender: FDA-Public Use
  Company Number: 08-001890

PATIENT
  Age: 17 Year
  Sex: Female
  Weight: 62.1 kg

DRUGS (2)
  1. LOESTRIN 24 FE [Suspect]
     Indication: CONTRACEPTION
     Dosage: 20/1000 UG, ORAL
     Route: 048
     Dates: start: 20080401, end: 20081119
  2. LOESTRIN 24 FE [Suspect]
     Indication: MENSTRUATION IRREGULAR
     Dosage: 20/1000 UG, ORAL
     Route: 048
     Dates: start: 20080401, end: 20081119

REACTIONS (2)
  - PNEUMONIA MYCOPLASMAL [None]
  - PULMONARY EMBOLISM [None]
